FAERS Safety Report 12387538 (Version 1)
Quarter: 2016Q2

REPORT INFORMATION
  Report Type: Spontaneous
  Country: JP (occurrence: JP)
  Receive Date: 20160520
  Receipt Date: 20160520
  Transmission Date: 20160815
  Serious: Yes (Other)
  Sender: FDA-Public Use
  Company Number: JP-AMGEN-JPNSP2016064198

PATIENT
  Age: 72 Year
  Sex: Female
  Weight: 54 kg

DRUGS (12)
  1. 5-FU                               /00098801/ [Suspect]
     Active Substance: FLUOROURACIL
     Indication: COLON CANCER
     Dosage: UNK UNK, Q2WEEKS
     Route: 042
     Dates: start: 20140820, end: 20160308
  2. CAMPTO [Suspect]
     Active Substance: IRINOTECAN
     Indication: COLON CANCER
     Dosage: 220 MG, Q2WEEKS
     Route: 041
     Dates: start: 20140820, end: 20160308
  3. BUSCOPAN [Concomitant]
     Active Substance: BUTYLSCOPOLAMINE BROMIDE
     Indication: PROPHYLAXIS OF NAUSEA AND VOMITING
     Dosage: 20 MG, Q2WEEKS
     Route: 041
     Dates: start: 20140820, end: 20160308
  4. 5-FU                               /00098801/ [Suspect]
     Active Substance: FLUOROURACIL
     Dosage: UNK UNK, Q2WEEKS
     Route: 042
     Dates: start: 20160405
  5. VECTIBIX [Suspect]
     Active Substance: PANITUMUMAB
     Dosage: 240 MG, Q2WEEKS
     Route: 041
     Dates: start: 20141112, end: 20141223
  6. CALCIUM LEVOFOLINATE [Concomitant]
     Active Substance: LEVOLEUCOVORIN CALCIUM
     Indication: COLON CANCER
     Dosage: 290 MG, Q2WEEKS
     Route: 041
     Dates: start: 20140820, end: 20160308
  7. CALCIUM LEVOFOLINATE [Concomitant]
     Active Substance: LEVOLEUCOVORIN CALCIUM
     Dosage: 290 MG, Q2WEEKS
     Route: 041
     Dates: start: 20160405
  8. VECTIBIX [Suspect]
     Active Substance: PANITUMUMAB
     Indication: COLON CANCER
     Dosage: 290 MG, Q2WEEKS
     Route: 041
     Dates: start: 20140820, end: 20141028
  9. ALOXI [Concomitant]
     Active Substance: PALONOSETRON HYDROCHLORIDE
     Indication: PROPHYLAXIS OF NAUSEA AND VOMITING
     Dosage: 0.75 MG, Q2WEEKS
     Route: 041
     Dates: start: 20140820
  10. DECADRON                           /00016002/ [Concomitant]
     Active Substance: DEXAMETHASONE
     Indication: PROPHYLAXIS OF NAUSEA AND VOMITING
     Dosage: 8 MG, Q2WEEKS
     Route: 041
     Dates: start: 20140820
  11. VECTIBIX [Suspect]
     Active Substance: PANITUMUMAB
     Dosage: 240 MG, Q2WEEKS
     Route: 041
     Dates: start: 20150224, end: 20160308
  12. FUROSEMIDE. [Concomitant]
     Active Substance: FUROSEMIDE
     Indication: HYPERTENSION
     Dosage: 20 MG, QD
     Route: 048
     Dates: start: 20140820

REACTIONS (3)
  - Deep vein thrombosis [Recovering/Resolving]
  - Paronychia [Unknown]
  - Skin erosion [Recovered/Resolved]

NARRATIVE: CASE EVENT DATE: 20160315
